FAERS Safety Report 7906103-9 (Version None)
Quarter: 2011Q4

REPORT INFORMATION
  Report Type: 
  Country: None (occurrence: None)
  Receive Date: 20111108
  Receipt Date: 20111024
  Transmission Date: 20120403
  Serious: Yes (Hospitalization, Other)
  Sender: FDA-Public Use
  Company Number: 2011MA015723

PATIENT
  Age: 58 Year
  Sex: Female

DRUGS (8)
  1. CINNACALCET [Concomitant]
  2. SEVELAMER CARBONATE [Concomitant]
  3. VALACYCLOVIR HYDROCHLORIDE [Suspect]
     Indication: HERPES ZOSTER
     Dosage: 1 G; TID; PO
     Route: 048
  4. EPOETIN ALFA [Concomitant]
  5. ERGOCALCIFEROL [Concomitant]
  6. AMLODIPINE [Concomitant]
  7. OMEGA-2 FATTY ACIDS [Concomitant]
  8. SIMVASTATIN [Concomitant]

REACTIONS (19)
  - NEUROTOXICITY [None]
  - BLOOD CHLORIDE DECREASED [None]
  - GAIT DISTURBANCE [None]
  - BLOOD SODIUM DECREASED [None]
  - HALLUCINATIONS, MIXED [None]
  - BLOOD PRESSURE SYSTOLIC INCREASED [None]
  - BLOOD CALCIUM INCREASED [None]
  - MENTAL STATUS CHANGES [None]
  - CONFUSIONAL STATE [None]
  - DYSARTHRIA [None]
  - TOXIC ENCEPHALOPATHY [None]
  - NEUROPSYCHIATRIC SYNDROME [None]
  - INCOHERENT [None]
  - HEADACHE [None]
  - DIZZINESS [None]
  - INCORRECT DOSE ADMINISTERED [None]
  - BALANCE DISORDER [None]
  - DISORIENTATION [None]
  - METABOLIC ENCEPHALOPATHY [None]
